FAERS Safety Report 16157982 (Version 2)
Quarter: 2019Q4

REPORT INFORMATION
  Report Type: Spontaneous
  Country: US (occurrence: US)
  Receive Date: 20190404
  Receipt Date: 20191226
  Transmission Date: 20200122
  Serious: Yes (Death, Life-Threatening, Hospitalization)
  Sender: FDA-Public Use
  Company Number: US-JNJFOC-20190404293

PATIENT
  Age: 70 Year
  Sex: Male
  Weight: 76.27 kg

DRUGS (4)
  1. XARELTO [Suspect]
     Active Substance: RIVAROXABAN
     Indication: DEEP VEIN THROMBOSIS
  2. XARELTO [Suspect]
     Active Substance: RIVAROXABAN
     Indication: CEREBROVASCULAR ACCIDENT PROPHYLAXIS
     Route: 048
  3. XARELTO [Suspect]
     Active Substance: RIVAROXABAN
     Indication: THROMBOSIS PROPHYLAXIS
  4. XARELTO [Suspect]
     Active Substance: RIVAROXABAN
     Indication: ATRIAL FIBRILLATION

REACTIONS (8)
  - Acute myocardial infarction [Fatal]
  - Renal failure [Fatal]
  - Epistaxis [Unknown]
  - Septic shock [Fatal]
  - Haematuria [Recovered/Resolved]
  - Gastrointestinal haemorrhage [Unknown]
  - Thrombocytopenia [Fatal]
  - Haemoptysis [Unknown]

NARRATIVE: CASE EVENT DATE: 20180222
